FAERS Safety Report 4822003-5 (Version None)
Quarter: 2005Q4

REPORT INFORMATION
  Report Type: 
  Country: None (occurrence: None)
  Receive Date: 20051107
  Receipt Date: 20051031
  Transmission Date: 20060501
  Serious: Yes (Hospitalization)
  Sender: FDA-Public Use
  Company Number: US-JNJFOC-20051100374

PATIENT
  Age: 26 Day
  Sex: Female
  Weight: 4 kg

DRUGS (2)
  1. CHILDREN'S TYLENOL [Suspect]
     Route: 048
  2. CHILDREN'S TYLENOL [Suspect]
     Indication: DRUG USE FOR UNKNOWN INDICATION
     Dosage: 1 ML; }24 HR {= 1 WEEK
     Route: 048

REACTIONS (2)
  - ELECTROLYTE IMBALANCE [None]
  - INAPPROPRIATE SCHEDULE OF DRUG ADMINISTRATION [None]
